FAERS Safety Report 4707488-7 (Version None)
Quarter: 2005Q3

REPORT INFORMATION
  Report Type: 
  Country: None (occurrence: None)
  Receive Date: 20050706
  Receipt Date: 20050630
  Transmission Date: 20060218
  Serious: Yes (Death, Hospitalization)
  Sender: FDA-Public Use
  Company Number: KR-GLAXOSMITHKLINE-B0386351A

PATIENT
  Age: 63 Year
  Sex: Female

DRUGS (7)
  1. TOPOTECAN [Suspect]
     Indication: OVARIAN CANCER
     Dosage: 1.5MGM2 PER DAY
     Route: 042
     Dates: start: 20041119
  2. DEXAMETHASONE [Concomitant]
  3. CIMETIDINE [Concomitant]
  4. BENADRYL [Concomitant]
  5. DOLASETRON [Concomitant]
  6. AMIFOSTINE [Concomitant]
  7. CARBOPLATIN [Concomitant]

REACTIONS (4)
  - HEADACHE [None]
  - HYPERTENSION [None]
  - HYPONATRAEMIA [None]
  - MENTAL STATUS CHANGES [None]
